FAERS Safety Report 16667799 (Version 5)
Quarter: 2019Q3

REPORT INFORMATION
  Report Type: Spontaneous
  Country: FR (occurrence: FR)
  Receive Date: 20190805
  Receipt Date: 20190925
  Transmission Date: 20191004
  Serious: Yes (Life-Threatening)
  Sender: FDA-Public Use
  Company Number: FR-ASTRAZENECA-2019SF09822

PATIENT
  Age: 85 Year
  Sex: Male
  Weight: 75 kg

DRUGS (21)
  1. INEXIUM [Suspect]
     Active Substance: ESOMEPRAZOLE
     Indication: POISONING DELIBERATE
     Dosage: 80 MG, ONCE, QUANTITY SUPPOSEDLY INGESTED: 4 TABLETS OF 20 MG
     Route: 048
     Dates: start: 20190701, end: 20190701
  2. BISOPROLOL HEMIFUMARATE [Suspect]
     Active Substance: BISOPROLOL FUMARATE
     Indication: POISONING DELIBERATE
     Dosage: 20 MG, ONCE, AMOUNT QUANTITY SUPPOSEDLY INGESTED: 4 TABLETS OF 5 MG
     Route: 048
     Dates: start: 20190701, end: 20190701
  3. IMOVANE [Suspect]
     Active Substance: ZOPICLONE
     Indication: POISONING DELIBERATE
     Dosage: 30 MG, TOTAL (INTENDED AMOUNT INGESTED: 4 TIMES 7.5 MG)
     Route: 048
     Dates: start: 20190701, end: 20190701
  4. BISOPROLOL HEMIFUMARATE [Suspect]
     Active Substance: BISOPROLOL FUMARATE
     Indication: POISONING DELIBERATE
     Dosage: 20 MG, TOTAL (DOSE PRESUMED TO BE INGESTED: 4 CP OF 5 MG
     Route: 048
     Dates: start: 20190701, end: 20190701
  5. IMOVANE [Suspect]
     Active Substance: ZOPICLONE
     Indication: POISONING DELIBERATE
     Dosage: 30 MG, ONCE, QUANTITY SUPPOSEDLY INGESTED: 7,5 MG FOUR TIMES A DAY
     Route: 048
     Dates: start: 20190701, end: 20190701
  6. RAMIPRIL. [Suspect]
     Active Substance: RAMIPRIL
     Indication: POISONING DELIBERATE
     Route: 048
     Dates: start: 20190701, end: 20190701
  7. LEVOTHYROX [Suspect]
     Active Substance: LEVOTHYROXINE
     Indication: POISONING DELIBERATE
     Dosage: 500 UG/INHALATION, AMOUNT INGESTED SUPPOSED: 125 MICROGRAMS FOUR TIMES A DAY
     Route: 048
  8. CORDARONE [Suspect]
     Active Substance: AMIODARONE HYDROCHLORIDE
     Indication: POISONING DELIBERATE
     Dosage: 800 MG, ONCE, QUANTITY SUPPOSEDLY INGESTED: 4 CP OF 200 MG
     Route: 048
     Dates: start: 20190701, end: 20190701
  9. MELATONINE [Suspect]
     Active Substance: MELATONIN
     Indication: POISONING DELIBERATE
     Dosage: 48 MG, TOTAL AMOUNT INGESTED SUPPOSED:12 MG FOUR TIMES A DAY
     Route: 048
     Dates: start: 20190701, end: 20190701
  10. MELATONINE [Suspect]
     Active Substance: MELATONIN
     Indication: POISONING DELIBERATE
     Dosage: 48 MG, ONCE, AMOUNT INGESTED SUPPOSED: 4 X 12 MG
     Route: 048
     Dates: start: 20190701, end: 20190701
  11. IMOVANE [Suspect]
     Active Substance: ZOPICLONE
     Indication: POISONING DELIBERATE
     Dosage: 30 MG, ONCE, QUANTITY SUPPOSEDLY INGESTED: 4 X 7,5 MG
     Route: 048
     Dates: start: 20190701, end: 20190701
  12. INEXIUM [Suspect]
     Active Substance: ESOMEPRAZOLE
     Indication: POISONING DELIBERATE
     Dosage: ASSUMED QUANTITY INGESTED: 4 TABLETS OF 20 MG
     Route: 048
     Dates: start: 20190701, end: 20190701
  13. LEVOTHYROX [Suspect]
     Active Substance: LEVOTHYROXINE
     Indication: POISONING DELIBERATE
     Dosage: 500 UG/INHALATION, AMOUNT INGESTED SUPPOSED: 4 X 125 MICROGRAMS
     Route: 048
  14. KARDEGIC [Suspect]
     Active Substance: ASPIRIN DL-LYSINE
     Indication: POISONING DELIBERATE
     Dosage: 300 MG, ONCE, AMOUNT INGESTED SUPPOSED: 4 BAGS OF 75 MG
     Route: 048
     Dates: start: 20190701, end: 20190701
  15. TAHOR [Suspect]
     Active Substance: ATORVASTATIN CALCIUM
     Indication: POISONING DELIBERATE
     Dosage: 40.0MG ONCE/SINGLE ADMINISTRATION
     Route: 048
     Dates: start: 20190701, end: 20190701
  16. CORDARONE [Suspect]
     Active Substance: AMIODARONE HYDROCHLORIDE
     Indication: POISONING DELIBERATE
     Dosage: 800 MG, TOTAL (INTENDED QUANTITY INGESTED 4 CP OF 200 MG
     Route: 048
     Dates: start: 20190701, end: 20190701
  17. INEXIUM [Suspect]
     Active Substance: ESOMEPRAZOLE
     Indication: POISONING DELIBERATE
     Dosage: 80 MG, TOTAL (INTENDED QUANTITY INGESTED: 4 TABLETS OF 20 MG)
     Route: 048
     Dates: start: 20190701, end: 20190701
  18. MIANSERIN HYDROCHLORIDE [Suspect]
     Active Substance: MIANSERIN HYDROCHLORIDE
     Indication: POISONING DELIBERATE
     Dosage: 120 MG, TOTAL (INTENDED QUANTITY INGESTED: 4 TABLETS OF 30 MG)
     Route: 048
     Dates: start: 20190701, end: 20190701
  19. KARDEGIC [Suspect]
     Active Substance: ASPIRIN DL-LYSINE
     Indication: POISONING DELIBERATE
     Dosage: 300 MG, TOTAL (INTENDED DOSE INGESTED 4 SACHETS OF 75 MG
     Route: 048
     Dates: start: 20190701, end: 20190701
  20. INSPRA [Suspect]
     Active Substance: EPLERENONE
     Indication: POISONING DELIBERATE
     Dosage: 100 MG, TOTAL (INTENDED QUANTITY INGESTED: 4 CP)
     Route: 048
     Dates: start: 20190701, end: 20190701
  21. INSPRA [Suspect]
     Active Substance: EPLERENONE
     Indication: POISONING DELIBERATE
     Dosage: 100 MG, ONCE, AMOUNT INGESTED SUPPOSED: 4 TABLETS
     Route: 048
     Dates: start: 20190701, end: 20190701

REACTIONS (5)
  - Bradycardia [Recovered/Resolved]
  - Cardiogenic shock [Recovered/Resolved]
  - Hypoglycaemia [Recovered/Resolved]
  - Overdose [Unknown]
  - Poisoning deliberate [Recovered/Resolved]

NARRATIVE: CASE EVENT DATE: 20190701
